FAERS Safety Report 7985850-7 (Version None)
Quarter: 2011Q4

REPORT INFORMATION
  Report Type: 
  Country: None (occurrence: None)
  Receive Date: 20111216
  Receipt Date: 20111212
  Transmission Date: 20120403
  Serious: Yes (Hospitalization, Other)
  Sender: FDA-Public Use
  Company Number: IL-PFIZER INC-2011194751

PATIENT
  Age: 56 Year
  Sex: Male

DRUGS (8)
  1. BLINDED THERAPY [Suspect]
     Indication: TYPE 2 DIABETES MELLITUS
     Dosage: UNK
     Dates: start: 20101208
  2. LANTUS [Suspect]
     Indication: TYPE 2 DIABETES MELLITUS
     Dosage: 40 IU, UNK
  3. METFORMIN HCL [Suspect]
     Indication: TYPE 2 DIABETES MELLITUS
     Dosage: 2550 MG, UNK
  4. HUMALOG [Suspect]
     Indication: TYPE 2 DIABETES MELLITUS
     Dosage: 60 IU, UNK
  5. AMLODIPINE [Suspect]
     Dosage: UNK
     Dates: end: 20110611
  6. TEGRETOL [Suspect]
  7. LYRICA [Suspect]
  8. LOPRESSOR [Suspect]
     Dosage: UNK
     Dates: end: 20110609

REACTIONS (3)
  - SYNCOPE [None]
  - CHEST PAIN [None]
  - ANGINA UNSTABLE [None]
